FAERS Safety Report 7958961-X (Version None)
Quarter: 2011Q4

REPORT INFORMATION
  Report Type: 
  Country: None (occurrence: None)
  Receive Date: 20111130
  Receipt Date: 20111118
  Transmission Date: 20120403
  Serious: Yes (Life-Threatening, Hospitalization, Other)
  Sender: FDA-Public Use
  Company Number: CRC-11-301

PATIENT
  Age: 65 Year

DRUGS (2)
  1. METHIMAZOLE [Suspect]
     Indication: HYPERTHYROIDISM
     Dosage: 40 MG 2X/DAY; ORAL FOR TEN WEEKS
     Route: 048
  2. PROPRANOLOL 80MG THREE TIMES A DAY [Concomitant]

REACTIONS (4)
  - FATIGUE [None]
  - TACHYCARDIA [None]
  - MELAENA [None]
  - INTERNATIONAL NORMALISED RATIO INCREASED [None]
